FAERS Safety Report 4542299-7 (Version None)
Quarter: 2004Q4

REPORT INFORMATION
  Report Type: 
  Country: None (occurrence: None)
  Receive Date: 20041227
  Receipt Date: 20041217
  Transmission Date: 20050328
  Serious: Yes (Hospitalization)
  Sender: FDA-Public Use
  Company Number: KII-2004-0014323

PATIENT
  Age: 9 Month
  Sex: Male

DRUGS (1)
  1. OXYCONTIN [Suspect]
     Dosage: SINGLE, ORAL
     Route: 048
     Dates: start: 20041121

REACTIONS (3)
  - ACCIDENTAL EXPOSURE [None]
  - MIOSIS [None]
  - SOMNOLENCE [None]
